FAERS Safety Report 18581427 (Version 1)
Quarter: 2020Q4

REPORT INFORMATION
  Report Type: Spontaneous
  Country: US (occurrence: US)
  Receive Date: 20201204
  Receipt Date: 20201204
  Transmission Date: 20210114
  Serious: Yes (Congenital Anomaly, Other)
  Sender: FDA-Public Use
  Company Number: US-ELI_LILLY_AND_COMPANY-US202011011559

PATIENT
  Sex: Male

DRUGS (1)
  1. HUMATROPE [Suspect]
     Active Substance: SOMATROPIN
     Indication: GROWTH HORMONE DEFICIENCY
     Dosage: 1.2 MG, 7 TIMES/ WEEK
     Route: 065

REACTIONS (9)
  - Cerebrovascular accident [Unknown]
  - Lordosis [Unknown]
  - Weight increased [Unknown]
  - Testicular disorder [Unknown]
  - Syncope [Unknown]
  - Ventricular hypoplasia [Unknown]
  - Cyanosis [Unknown]
  - Scrotal swelling [Unknown]
  - Congenital tricuspid valve atresia [Unknown]
